FAERS Safety Report 19171499 (Version 1)
Quarter: 2021Q2

REPORT INFORMATION
  Report Type: Spontaneous
  Country: US (occurrence: US)
  Receive Date: 20210422
  Receipt Date: 20210422
  Transmission Date: 20210717
  Serious: Yes (Life-Threatening, Other)
  Sender: FDA-Public Use
  Company Number: None

PATIENT
  Age: 59 Year
  Sex: Male
  Weight: 102.06 kg

DRUGS (2)
  1. VANCOMYCIN (VANCOMYCIN HCL 100MG/ML INJ) [Suspect]
     Active Substance: VANCOMYCIN HYDROCHLORIDE
     Indication: PELVIC ABSCESS
     Route: 042
     Dates: start: 20210116, end: 20210116
  2. PIPERACILLIN/TAZOBACTAM (PIPERACILLIN NA 3GM/TAZOBACTAM NA 0.375 GM/VIL INJ) [Suspect]
     Active Substance: PIPERACILLIN SODIUM\TAZOBACTAM SODIUM
     Indication: PELVIC ABSCESS
     Route: 042
     Dates: start: 20210114, end: 20210117

REACTIONS (3)
  - Acute kidney injury [None]
  - Blood urea increased [None]
  - Blood creatinine increased [None]

NARRATIVE: CASE EVENT DATE: 20210117
